FAERS Safety Report 24254261 (Version 2)
Quarter: 2024Q3

REPORT INFORMATION
  Report Type: Other
  Country: JP (occurrence: JP)
  Receive Date: 20240827
  Receipt Date: 20240911
  Transmission Date: 20241016
  Serious: Yes (Other)
  Sender: B BRAUN
  Company Number: JP-B.Braun Medical Inc.-2160909

PATIENT
  Age: 66 Year
  Sex: Male

DRUGS (9)
  1. ACETAMINOPHEN [Suspect]
     Active Substance: ACETAMINOPHEN
  2. Two unspecified antihypertensives [Concomitant]
  3. BUSULFAN [Concomitant]
     Active Substance: BUSULFAN
  4. POSACONAZOLE [Concomitant]
     Active Substance: POSACONAZOLE
  5. DIPHENHYDRAMINE [Concomitant]
     Active Substance: DIPHENHYDRAMINE
  6. UNSPECIFIED INGREDIENT [Concomitant]
     Active Substance: UNSPECIFIED INGREDIENT
  7. METHYLPREDNISOLONE [Concomitant]
     Active Substance: METHYLPREDNISOLONE
  8. THYMOCYTE IMMUNE GLOBULIN NOS [Concomitant]
     Active Substance: THYMOCYTE IMMUNE GLOBULIN NOS
  9. VALPROIC ACID [Concomitant]
     Active Substance: VALPROIC ACID

REACTIONS (3)
  - Drug interaction [Recovered/Resolved]
  - Hallucinations, mixed [Recovered/Resolved]
  - Off label use [Recovered/Resolved]
